FAERS Safety Report 19749604 (Version 1)
Quarter: 2021Q3

REPORT INFORMATION
  Report Type: Spontaneous
  Country: US (occurrence: US)
  Receive Date: 20210824
  Receipt Date: 20210824
  Transmission Date: 20211014
  Serious: Yes (Other)
  Sender: FDA-Public Use
  Company Number: None

PATIENT
  Age: 55 Year
  Sex: Female

DRUGS (2)
  1. KEVZARA [Concomitant]
     Active Substance: SARILUMAB
  2. ACTEMRA [Suspect]
     Active Substance: TOCILIZUMAB
     Indication: RHEUMATOID ARTHRITIS
     Route: 058
     Dates: start: 20181127

REACTIONS (3)
  - Rheumatoid arthritis [None]
  - Urinary tract infection [None]
  - Pain [None]

NARRATIVE: CASE EVENT DATE: 2020
